FAERS Safety Report 8474361-0 (Version None)
Quarter: 2012Q2

REPORT INFORMATION
  Report Type: 
  Country: None (occurrence: None)
  Receive Date: 20120628
  Receipt Date: 20111013
  Transmission Date: 20120825
  Serious: Yes (Other)
  Sender: FDA-Public Use
  Company Number: US-MYLANLABS-2011S1020947

PATIENT
  Age: 24 Year
  Sex: Male

DRUGS (5)
  1. CLOZAPINE [Suspect]
     Indication: PSYCHOTIC DISORDER
     Route: 048
     Dates: start: 20110908, end: 20111007
  2. SERTRALINE HYDROCHLORIDE [Concomitant]
     Indication: DEPRESSION
     Route: 048
  3. CLOZAPINE [Suspect]
     Route: 048
     Dates: start: 20110908, end: 20111006
  4. DIVALPROEX SODIUM [Concomitant]
     Indication: BIPOLAR DISORDER
     Route: 048
  5. TRAZODONE HCL [Concomitant]
     Indication: DEPRESSION
     Route: 048

REACTIONS (2)
  - GRANULOCYTOPENIA [None]
  - LEUKOPENIA [None]
